FAERS Safety Report 13232678 (Version 1)
Quarter: 2017Q1

REPORT INFORMATION
  Report Type: Spontaneous
  Country: CN (occurrence: CN)
  Receive Date: 20170214
  Receipt Date: 20170214
  Transmission Date: 20170428
  Serious: Yes (Hospitalization, Other)
  Sender: FDA-Public Use
  Company Number: CN-PFIZER INC-2017057130

PATIENT
  Age: 53 Year
  Sex: Female
  Weight: 62 kg

DRUGS (3)
  1. OULANNING [Concomitant]
     Indication: SCHIZOPHRENIA
     Dosage: 5 MG, (ONE AT NOON AND TWO EVERY NIGHT
  2. ZELDOX [Suspect]
     Active Substance: ZIPRASIDONE
     Indication: SCHIZOPHRENIA
     Dosage: 60 MG, 2X/DAY
     Dates: start: 20161125, end: 20161202
  3. ZELDOX [Suspect]
     Active Substance: ZIPRASIDONE
     Indication: MENTAL DISORDER
     Dosage: 40 MG (ONE AT NOON AND TWO EVERY NIGHT)
     Dates: start: 2016

REACTIONS (9)
  - Temperature intolerance [Recovering/Resolving]
  - Nasal congestion [Recovering/Resolving]
  - Rash [Recovering/Resolving]
  - Drug eruption [Recovering/Resolving]
  - Constipation [Recovering/Resolving]
  - Pyrexia [Recovering/Resolving]
  - Liver injury [Recovering/Resolving]
  - Oedema [Recovering/Resolving]
  - Drug hypersensitivity [Recovering/Resolving]

NARRATIVE: CASE EVENT DATE: 20161118
